FAERS Safety Report 10345359 (Version 1)
Quarter: 2014Q3

REPORT INFORMATION
  Report Type: Spontaneous
  Country: DE (occurrence: DE)
  Receive Date: 20140728
  Receipt Date: 20140728
  Transmission Date: 20150326
  Serious: Yes (Death)
  Sender: FDA-Public Use
  Company Number: DE-BAXTER-2014BAX040995

PATIENT
  Sex: Female

DRUGS (3)
  1. PHYSIONEAL 35 GLUCOSE 3,86 % W/V 38,6 MG/ML PERITONEALDIALYSEL?SUNG [Suspect]
     Active Substance: CALCIUM CHLORIDE\DEXTROSE\MAGNESIUM CHLORIDE\SODIUM CHLORIDE SOLUTION
     Indication: PERITONEAL DIALYSIS
     Route: 033
  2. EXTRANEAL [Suspect]
     Active Substance: CALCIUM CHLORIDE\ICODEXTRIN\MAGNESIUM CHLORIDE\SODIUM CHLORIDE\SODIUM LACTATE
     Indication: PERITONEAL DIALYSIS
     Route: 033
  3. PHYSIONEAL 35 GLUCOSE 2,27 % W/V 22,7 MG/ML PERITONEALDIALYSEL?SUNG [Suspect]
     Active Substance: DEXTROSE
     Indication: PERITONEAL DIALYSIS
     Route: 033

REACTIONS (1)
  - Death [Fatal]

NARRATIVE: CASE EVENT DATE: 20140718
